FAERS Safety Report 23093386 (Version 1)
Quarter: 2023Q4

REPORT INFORMATION
  Report Type: Spontaneous
  Country: DE (occurrence: DE)
  Receive Date: 20231022
  Receipt Date: 20231022
  Transmission Date: 20240109
  Serious: Yes (Hospitalization, Other)
  Sender: FDA-Public Use
  Company Number: DE-SAMSUNG BIOEPIS-SB-2023-25218

PATIENT
  Age: 70 Year
  Sex: Male
  Weight: 69 kg

DRUGS (6)
  1. PEMBROLIZUMAB [Suspect]
     Active Substance: PEMBROLIZUMAB
     Indication: Oesophageal adenocarcinoma
     Dosage: 200 MG FLAT DOSE, IV, D1
     Route: 042
     Dates: start: 20230802, end: 20230914
  2. DOCETAXEL [Suspect]
     Active Substance: DOCETAXEL
     Indication: Oesophageal adenocarcinoma
     Dosage: 70 MILLIGRAM
     Route: 042
     Dates: start: 20230802, end: 20230914
  3. ONTRUZANT [Suspect]
     Active Substance: TRASTUZUMAB-DTTB
     Indication: Oesophageal adenocarcinoma
     Dosage: 414 MILLIGRAM
     Route: 042
     Dates: start: 20230802, end: 20230914
  4. OXALIPLATIN [Suspect]
     Active Substance: OXALIPLATIN
     Indication: Oesophageal adenocarcinoma
     Dosage: 117 MILLIGRAM
     Route: 042
     Dates: start: 20230802, end: 20230914
  5. FLUOROURACIL [Suspect]
     Active Substance: FLUOROURACIL
     Indication: Oesophageal adenocarcinoma
     Dosage: 4800 MILLIGRAM
     Route: 042
     Dates: start: 20230802, end: 20230831
  6. LEUCOVORIN [Suspect]
     Active Substance: LEUCOVORIN\LEUCOVORIN CALCIUM
     Indication: Oesophageal adenocarcinoma
     Dosage: 370 MILLIGRAM
     Route: 042
     Dates: start: 20230802, end: 20230914

REACTIONS (4)
  - Product use in unapproved indication [Unknown]
  - Chills [Recovered/Resolved]
  - Pyrexia [Recovered/Resolved]
  - Neutropenia [Unknown]

NARRATIVE: CASE EVENT DATE: 20230101
